FAERS Safety Report 23767632 (Version 1)
Quarter: 2024Q2

REPORT INFORMATION
  Report Type: Spontaneous
  Country: FR (occurrence: FR)
  Receive Date: 20240422
  Receipt Date: 20240422
  Transmission Date: 20240715
  Serious: Yes (Death, Life-Threatening, Hospitalization, Other)
  Sender: FDA-Public Use
  Company Number: FR-CHEPLA-9000008119

PATIENT
  Age: 62 Year
  Sex: Female
  Weight: 40 kg

DRUGS (9)
  1. PREDNISONE [Suspect]
     Active Substance: PREDNISONE
     Indication: Immunosuppressant drug therapy
     Dosage: 20 MG, QD?DAILY DOSE: 20 MILLIGRAM
     Route: 048
     Dates: start: 20130529, end: 20130630
  2. GANCICLOVIR [Suspect]
     Active Substance: GANCICLOVIR
     Indication: Cytomegalovirus infection
  3. PROGRAF [Suspect]
     Active Substance: TACROLIMUS
     Indication: Immunosuppressant drug therapy
     Dosage: 5 MG, QD?DAILY DOSE: 5 MILLIGRAM
     Route: 048
     Dates: start: 20130529, end: 20130630
  4. PROGRAF [Suspect]
     Active Substance: TACROLIMUS
     Indication: Immunosuppressant drug therapy
     Dosage: 10 MG,QD
     Route: 048
     Dates: start: 20130529, end: 20130630
  5. CELLCEPT [Suspect]
     Active Substance: MYCOPHENOLATE MOFETIL
     Indication: Immunosuppressant drug therapy
     Dosage: 2 G, QD?DAILY DOSE: 2 GRAM
     Route: 048
     Dates: start: 20130529, end: 20130614
  6. FUROSEMIDE [Suspect]
     Active Substance: FUROSEMIDE
     Indication: Diuretic therapy
  7. SOLU-MEDROL [Suspect]
     Active Substance: METHYLPREDNISOLONE SODIUM SUCCINATE
     Indication: Prophylaxis against transplant rejection
     Dosage: 20 MG, QD?DAILY DOSE: 20 MILLIGRAM
     Route: 042
     Dates: start: 20130529, end: 20130630
  8. COLISTIMETHATE SODIUM [Suspect]
     Active Substance: COLISTIMETHATE SODIUM
  9. CASPOFUNGIN [Suspect]
     Active Substance: CASPOFUNGIN

REACTIONS (20)
  - Hypoxia [Fatal]
  - Coagulopathy [Fatal]
  - Haemodynamic instability [Fatal]
  - Aspergillus infection [Fatal]
  - Pulmonary oedema [Fatal]
  - Cardiorenal syndrome [Fatal]
  - Lung disorder [Fatal]
  - Cytomegalovirus infection reactivation [Fatal]
  - Hypercapnia [Fatal]
  - Renal failure [Fatal]
  - Acute respiratory distress syndrome [Fatal]
  - Inflammation [Fatal]
  - Metabolic disorder [Fatal]
  - Systemic inflammatory response syndrome [Fatal]
  - Toxoplasmosis [Fatal]
  - Respiratory failure [Fatal]
  - Respiratory acidosis [Fatal]
  - Multiple organ dysfunction syndrome [Fatal]
  - Hypovolaemia [Fatal]
  - Renal impairment [Unknown]

NARRATIVE: CASE EVENT DATE: 20130601
